FAERS Safety Report 25553049 (Version 1)
Quarter: 2025Q3

REPORT INFORMATION
  Report Type: Spontaneous
  Country: EU (occurrence: EU)
  Receive Date: 20250715
  Receipt Date: 20250715
  Transmission Date: 20251021
  Serious: Yes (Life-Threatening, Hospitalization)
  Sender: AMGEN
  Company Number: None

PATIENT
  Age: 60 Year
  Sex: Female

DRUGS (4)
  1. TRASTUZUMAB [Suspect]
     Active Substance: TRASTUZUMAB
     Indication: Product used for unknown indication
     Route: 040
     Dates: start: 20250606
  2. CARBOPLATIN [Suspect]
     Active Substance: CARBOPLATIN
     Indication: Invasive ductal breast carcinoma
     Route: 040
     Dates: start: 20250606
  3. DOCETAXEL [Suspect]
     Active Substance: DOCETAXEL
     Indication: Product used for unknown indication
     Route: 040
     Dates: start: 20250606
  4. PERTUZUMAB [Suspect]
     Active Substance: PERTUZUMAB
     Indication: Product used for unknown indication
     Route: 040
     Dates: start: 20250606

REACTIONS (1)
  - Megacolon [Recovering/Resolving]

NARRATIVE: CASE EVENT DATE: 20250609
